FAERS Safety Report 19717383 (Version 1)
Quarter: 2021Q3

REPORT INFORMATION
  Report Type: Spontaneous
  Country: US (occurrence: US)
  Receive Date: 20210819
  Receipt Date: 20210819
  Transmission Date: 20211014
  Serious: No
  Sender: FDA-Public Use
  Company Number: US-CELLTRION INC.-2021US009670

PATIENT

DRUGS (4)
  1. TRUXIMA [Suspect]
     Active Substance: RITUXIMAB-ABBS
     Indication: WALDENSTROM^S MACROGLOBULINAEMIA
     Dosage: 761 MG DAY 1, DAY 8, DAY 15 AND DAY 22 WEEKLY
     Dates: start: 20210621
  2. TRUXIMA [Suspect]
     Active Substance: RITUXIMAB-ABBS
     Dosage: 761 MG DAY 1, DAY 8, DAY 15 AND DAY 22 WEEKLY
     Dates: start: 20210706
  3. TRUXIMA [Suspect]
     Active Substance: RITUXIMAB-ABBS
     Dosage: 761 MG DAY 1, DAY 8, DAY 15 AND DAY 22 WEEKLY
     Dates: start: 20210712
  4. TRUXIMA [Suspect]
     Active Substance: RITUXIMAB-ABBS
     Dosage: 761 MG DAY 1, DAY 8, DAY 15 AND DAY 22 WEEKLY
     Dates: start: 20210628

REACTIONS (1)
  - Off label use [Unknown]
